FAERS Safety Report 7863774-3 (Version None)
Quarter: 2011Q4

REPORT INFORMATION
  Report Type: 
  Country: None (occurrence: None)
  Receive Date: 20111028
  Receipt Date: 20111013
  Transmission Date: 20120403
  Serious: Yes (Other)
  Sender: FDA-Public Use
  Company Number: DE-AMGEN-DEUCT2011052859

PATIENT
  Age: 58 Year
  Sex: Male

DRUGS (2)
  1. ETANERCEPT [Suspect]
     Indication: RHEUMATOID ARTHRITIS
     Dosage: 50 MG, QWK
     Route: 058
     Dates: start: 20110711
  2. ETANERCEPT [Suspect]
     Indication: PSORIATIC ARTHROPATHY

REACTIONS (3)
  - HYPERSENSITIVITY [None]
  - OEDEMA PERIPHERAL [None]
  - ERYTHEMA [None]
